FAERS Safety Report 18371088 (Version 5)
Quarter: 2021Q2

REPORT INFORMATION
  Report Type: Report from Study
  Country: US (occurrence: US)
  Receive Date: 20201012
  Receipt Date: 20210526
  Transmission Date: 20210717
  Serious: Yes (Other)
  Sender: FDA-Public Use
  Company Number: US-SHIRE-US202033059

PATIENT
  Sex: Female
  Weight: 88 kg

DRUGS (10)
  1. PREDNISONE. [Concomitant]
     Active Substance: PREDNISONE
     Route: 065
  2. LMX4 [Concomitant]
     Active Substance: LIDOCAINE
     Route: 065
  3. HUMAN NORMAL IMMUNOGLOBULIN; LIQUID [Suspect]
     Active Substance: HUMAN IMMUNOGLOBULIN G
     Indication: MYASTHENIA GRAVIS
     Dosage: 40 GRAM, QD
     Route: 042
     Dates: start: 20200311
  4. ACETAMINOPHEN. [Concomitant]
     Active Substance: ACETAMINOPHEN
     Route: 065
  5. DIPHENHYDRAMINE. [Concomitant]
     Active Substance: DIPHENHYDRAMINE
     Route: 065
  6. FLUOXETINE HCL [Concomitant]
     Active Substance: FLUOXETINE HYDROCHLORIDE
     Route: 065
  7. HEPARIN [Concomitant]
     Active Substance: HEPARIN SODIUM
     Route: 065
  8. SODIUM CHLORIDE. [Concomitant]
     Active Substance: SODIUM CHLORIDE
     Route: 065
  9. EPINEPHRINE. [Concomitant]
     Active Substance: EPINEPHRINE
     Route: 065
  10. CALCIUM [Concomitant]
     Active Substance: CALCIUM
     Route: 065

REACTIONS (9)
  - Dizziness [Unknown]
  - Headache [Recovered/Resolved]
  - Infusion related reaction [Recovered/Resolved]
  - Fatigue [Unknown]
  - Urinary tract infection [Unknown]
  - Poor venous access [Unknown]
  - Asthenia [Unknown]
  - Dental operation [Unknown]
  - Arthralgia [Unknown]
